FAERS Safety Report 6068379-5 (Version None)
Quarter: 2009Q1

REPORT INFORMATION
  Report Type: 
  Country: None (occurrence: None)
  Receive Date: 20090203
  Receipt Date: 20090128
  Transmission Date: 20090719
  Serious: Yes (Life-Threatening, Hospitalization)
  Sender: FDA-Public Use
  Company Number: 2009SP002075

PATIENT
  Age: 53 Year
  Sex: Female

DRUGS (15)
  1. REBETOL [Suspect]
     Indication: HEPATITIS C
     Dosage: 800 MG; QD;PO
     Route: 048
     Dates: start: 20070301, end: 20070515
  2. PEGASYS [Suspect]
     Indication: HEPATITIS C
     Dosage: 180 MCG;QW;SC
     Route: 058
     Dates: start: 20070301, end: 20070515
  3. EFFEXOR [Suspect]
     Indication: DEPRESSION
     Dosage: 150 MG;QD;PO
     Route: 048
  4. MANTADIX [Concomitant]
  5. ARANESP [Concomitant]
  6. NEUPOGEN [Concomitant]
  7. CORTANCYL [Concomitant]
  8. CACIT VIT D3 [Concomitant]
  9. ACTONEL [Concomitant]
  10. TRIATEC [Concomitant]
  11. ATARAX [Concomitant]
  12. BUSPAR [Concomitant]
  13. RIVOTRIL [Concomitant]
  14. FOSAMAX [Concomitant]
  15. DAONIL [Concomitant]

REACTIONS (9)
  - ANAEMIA [None]
  - CONFUSIONAL STATE [None]
  - CONVULSION [None]
  - DEPRESSED LEVEL OF CONSCIOUSNESS [None]
  - GENERAL PHYSICAL HEALTH DETERIORATION [None]
  - HAEMOGLOBIN DECREASED [None]
  - LUMBAR PUNCTURE ABNORMAL [None]
  - MOTOR DYSFUNCTION [None]
  - THROMBOTIC THROMBOCYTOPENIC PURPURA [None]
